FAERS Safety Report 9253163 (Version 1)
Quarter: 2013Q2

REPORT INFORMATION
  Report Type: Spontaneous
  Country: US (occurrence: US)
  Receive Date: 20130424
  Receipt Date: 20130424
  Transmission Date: 20140414
  Serious: No
  Sender: FDA-Public Use
  Company Number: US-PFIZER INC-2013128582

PATIENT
  Age: 65 Year
  Sex: Male
  Weight: 82.54 kg

DRUGS (5)
  1. VIAGRA [Suspect]
     Indication: ERECTILE DYSFUNCTION
     Dosage: 50 MG, 1X/DAY
  2. VIAGRA [Suspect]
     Dosage: 100 MG, 1X/DAY
     Dates: start: 201303, end: 201304
  3. TAMSULOSIN HYDROCHLORIDE [Concomitant]
     Indication: PROSTATIC DISORDER
     Dosage: 0.4 MG, 2X/DAY
  4. VYTORIN [Concomitant]
     Indication: BLOOD CHOLESTEROL ABNORMAL
     Dosage: 10/20 MG, 1X/DAY
  5. NIASPAN [Concomitant]
     Indication: BLOOD CHOLESTEROL ABNORMAL
     Dosage: 2000 MG, 1X/DAY

REACTIONS (1)
  - Drug ineffective [Unknown]
